FAERS Safety Report 4627823-8 (Version None)
Quarter: 2005Q2

REPORT INFORMATION
  Report Type: 
  Country: None (occurrence: None)
  Receive Date: 20050406
  Receipt Date: 20050330
  Transmission Date: 20051028
  Serious: Yes (Other)
  Sender: FDA-Public Use
  Company Number: 200510866EU

PATIENT
  Sex: Male

DRUGS (2)
  1. FLAGYL [Suspect]
  2. IMODIUM [Concomitant]

REACTIONS (1)
  - POLYNEUROPATHY [None]
